FAERS Safety Report 16300380 (Version 2)
Quarter: 2019Q2

REPORT INFORMATION
  Report Type: Report from Study
  Country: JP (occurrence: JP)
  Receive Date: 20190510
  Receipt Date: 20190627
  Transmission Date: 20190711
  Serious: Yes (Other)
  Sender: FDA-Public Use
  Company Number: JP-SA-2019SA128465

PATIENT
  Age: 65 Year
  Sex: Male
  Weight: 53 kg

DRUGS (4)
  1. OXALIPLATIN. [Suspect]
     Active Substance: OXALIPLATIN
     Dosage: 85 MG/M2, QOW
     Route: 042
     Dates: start: 20181102, end: 20190208
  2. TAS 118 [Suspect]
     Active Substance: GIMERACIL\LEUCOVORIN\OTERACIL\TEGAFUR
     Dosage: 50 MG, BID
     Route: 048
     Dates: start: 20181102, end: 20190215
  3. OXALIPLATIN. [Suspect]
     Active Substance: OXALIPLATIN
     Indication: GASTRIC CANCER
     Dosage: 85 MG/M2, QOW
     Route: 041
     Dates: start: 20180705, end: 20180817
  4. TAS 118 [Suspect]
     Active Substance: GIMERACIL\LEUCOVORIN\OTERACIL\TEGAFUR
     Indication: GASTRIC CANCER
     Dosage: 50 MG, BID
     Route: 048
     Dates: start: 20180705, end: 20180817

REACTIONS (1)
  - Pancreatic carcinoma [Recovered/Resolved]

NARRATIVE: CASE EVENT DATE: 20190422
